FAERS Safety Report 10794020 (Version 1)
Quarter: 2015Q1

REPORT INFORMATION
  Report Type: Spontaneous
  Country: AU (occurrence: AU)
  Receive Date: 20150213
  Receipt Date: 20150213
  Transmission Date: 20150721
  Serious: Yes (Death, Hospitalization)
  Sender: FDA-Public Use
  Company Number: PHHY2015AU014012

PATIENT
  Age: 75 Year
  Sex: Male

DRUGS (7)
  1. VINBLASTINE [Suspect]
     Active Substance: VINBLASTINE
     Indication: PRODUCT USED FOR UNKNOWN INDICATION
     Route: 065
     Dates: start: 201206, end: 201209
  2. UDCA [Concomitant]
     Indication: VANISHING BILE DUCT SYNDROME
     Dosage: 500 MG, BID
     Route: 065
  3. DOXORUBICIN [Suspect]
     Active Substance: DOXORUBICIN
     Indication: PRODUCT USED FOR UNKNOWN INDICATION
     Route: 065
     Dates: start: 201206, end: 201209
  4. BLEOMYCIN [Suspect]
     Active Substance: BLEOMYCIN SULFATE
     Indication: PRODUCT USED FOR UNKNOWN INDICATION
     Route: 065
     Dates: start: 201206, end: 201209
  5. CLOPIDOGREL [Concomitant]
     Active Substance: CLOPIDOGREL BISULFATE
     Indication: MYOCARDIAL INFARCTION
     Route: 065
     Dates: start: 201010
  6. DACARBAZINE. [Suspect]
     Active Substance: DACARBAZINE
     Indication: PRODUCT USED FOR UNKNOWN INDICATION
     Route: 065
     Dates: start: 201206, end: 201209
  7. CLARITHROMYCIN. [Concomitant]
     Active Substance: CLARITHROMYCIN
     Indication: RESPIRATORY TRACT INFECTION
     Route: 065

REACTIONS (16)
  - Staphylococcal infection [Unknown]
  - Pyrexia [Fatal]
  - Herpes zoster [Unknown]
  - Decreased appetite [Unknown]
  - Bacteraemia [Unknown]
  - Anaemia [Unknown]
  - Asthenia [Unknown]
  - Sepsis [Fatal]
  - Cytomegalovirus oesophagitis [Unknown]
  - Osteomyelitis [Unknown]
  - Bacterial prostatitis [Unknown]
  - Hypotension [Unknown]
  - Fatigue [Unknown]
  - Peritonitis bacterial [Fatal]
  - Ascites [Fatal]
  - Pneumonia [Unknown]

NARRATIVE: CASE EVENT DATE: 201304
